FAERS Safety Report 12174920 (Version 1)
Quarter: 2016Q1

REPORT INFORMATION
  Report Type: Spontaneous
  Country: PT (occurrence: PT)
  Receive Date: 20160314
  Receipt Date: 20160314
  Transmission Date: 20160526
  Serious: Yes (Other)
  Sender: FDA-Public Use
  Company Number: PT-BRACCO-000062

PATIENT

DRUGS (3)
  1. OMNISCAN [Suspect]
     Active Substance: GADODIAMIDE
     Indication: NUCLEAR MAGNETIC RESONANCE IMAGING
     Dosage: ADMINISTERED DOSES FROM 3 TO 11 (MEAN 5.9 DOSES +/- 2.7); 0.1 MMOL/KG
     Route: 042
  2. MULTIHANCE [Suspect]
     Active Substance: GADOBENATE DIMEGLUMINE
     Indication: NUCLEAR MAGNETIC RESONANCE IMAGING
     Dosage: ADMINISTERED DOSES FROM 3 TO 10 (MEAN 5.5 DOSES +/-1.9); 0.1 MMOL/KG
     Route: 042
  3. SALINE [Concomitant]
     Dosage: INJECTION SPEED: 1.5-2.0 ML/S
     Route: 040

REACTIONS (1)
  - Nuclear magnetic resonance imaging brain abnormal [Unknown]
